FAERS Safety Report 17223818 (Version 1)
Quarter: 2020Q1

REPORT INFORMATION
  Report Type: Spontaneous
  Country: US (occurrence: US)
  Receive Date: 20200102
  Receipt Date: 20200102
  Transmission Date: 20200409
  Serious: No
  Sender: FDA-Public Use
  Company Number: US-AMAG PHARMACEUTICALS, INC.-AMAG201906525

PATIENT
  Age: 63 Year
  Sex: Female
  Weight: 54.93 kg

DRUGS (1)
  1. INTRAROSA [Suspect]
     Active Substance: PRASTERONE
     Indication: ATROPHIC VULVOVAGINITIS
     Dosage: START DATE: AROUND THANKSGIVING ABOUT 6 WEEKS AGO. USING ONCE DAILY
     Route: 067

REACTIONS (6)
  - Seborrhoea [Not Recovered/Not Resolved]
  - Acne [Not Recovered/Not Resolved]
  - Nasopharyngitis [Not Recovered/Not Resolved]
  - Off label use [Unknown]
  - Rosacea [Not Recovered/Not Resolved]
  - Hordeolum [Recovered/Resolved]
